FAERS Safety Report 9688761 (Version 1)
Quarter: 2013Q4

REPORT INFORMATION
  Report Type: Spontaneous
  Country: IT (occurrence: IT)
  Receive Date: 20131114
  Receipt Date: 20131114
  Transmission Date: 20140711
  Serious: Yes (Hospitalization)
  Sender: FDA-Public Use
  Company Number: IT-ALLERGAN-1317545US

PATIENT
  Age: 84 Year
  Sex: Male

DRUGS (5)
  1. COMBIGAN [Suspect]
     Indication: GLAUCOMA
     Dosage: 4 DROPS DAILY
     Route: 061
     Dates: start: 20130601, end: 20131007
  2. PPI [Concomitant]
  3. ASA [Concomitant]
  4. BDZ [Concomitant]
  5. DECAPEPTIL 3.75 [Concomitant]

REACTIONS (3)
  - Hyperhidrosis [Recovering/Resolving]
  - Bradycardia [Recovering/Resolving]
  - Hypotension [Recovering/Resolving]
